FAERS Safety Report 21232204 (Version 3)
Quarter: 2023Q1

REPORT INFORMATION
  Report Type: Spontaneous
  Country: JP (occurrence: JP)
  Receive Date: 20220819
  Receipt Date: 20230120
  Transmission Date: 20230417
  Serious: Yes (Hospitalization)
  Sender: FDA-Public Use
  Company Number: JP-UCBJ-CD202208252UCBPHAPROD

PATIENT
  Age: 71 Year
  Sex: Female

DRUGS (5)
  1. LEVETIRACETAM [Suspect]
     Active Substance: LEVETIRACETAM
     Indication: Epilepsy
     Dosage: 1000 MILLIGRAM, ONCE DAILY (QD)
     Route: 048
  2. LEVETIRACETAM [Suspect]
     Active Substance: LEVETIRACETAM
     Dosage: 1500 MILLIGRAM, ONCE DAILY (QD)
     Route: 048
  3. LEVETIRACETAM [Suspect]
     Active Substance: LEVETIRACETAM
     Dosage: 2500 MILLIGRAM, ONCE DAILY (QD)
     Route: 048
  4. LEVETIRACETAM [Suspect]
     Active Substance: LEVETIRACETAM
     Dosage: 2000 MILLIGRAM, ONCE DAILY (QD)
     Route: 048
     Dates: end: 20220816
  5. WARFARIN [Concomitant]
     Active Substance: WARFARIN
     Indication: Cerebrovascular accident prophylaxis
     Dosage: UNK

REACTIONS (4)
  - Drug level increased [Recovering/Resolving]
  - Decreased appetite [Recovering/Resolving]
  - Depression [Recovering/Resolving]
  - Decreased activity [Recovering/Resolving]
